FAERS Safety Report 10166116 (Version 1)
Quarter: 2014Q2

REPORT INFORMATION
  Report Type: Spontaneous
  Country: US (occurrence: US)
  Receive Date: 20140512
  Receipt Date: 20140512
  Transmission Date: 20141212
  Serious: No
  Sender: FDA-Public Use
  Company Number: US-009507513-1405USA004583

PATIENT
  Sex: Female

DRUGS (2)
  1. JANUVIA [Suspect]
     Indication: TYPE 2 DIABETES MELLITUS
     Dosage: 100 MG, QD
     Route: 048
     Dates: start: 20140429
  2. TEKTURNA [Concomitant]

REACTIONS (5)
  - Nasal congestion [Unknown]
  - Bowel movement irregularity [Unknown]
  - Blood glucose increased [Unknown]
  - Cough [Unknown]
  - Diarrhoea [Recovered/Resolved]
